FAERS Safety Report 19646866 (Version 1)
Quarter: 2021Q3

REPORT INFORMATION
  Report Type: Report from Study
  Country: NL (occurrence: NL)
  Receive Date: 20210802
  Receipt Date: 20210802
  Transmission Date: 20211014
  Serious: Yes (Other)
  Sender: FDA-Public Use
  Company Number: NL-MYLANLABS-2021M1045822

PATIENT
  Age: 32 Year
  Sex: Male

DRUGS (2)
  1. FLUCLOXACILLINE                    /00239101/ [Concomitant]
     Active Substance: FLUCLOXACILLIN
     Dosage: 4 TIMES PER DAY ONE CAPSULE
     Route: 048
  2. GLATIRAMEERACETAAT MYLAN 40 MG/ML [Suspect]
     Active Substance: GLATIRAMER ACETATE
     Indication: MULTIPLE SCLEROSIS
     Dosage: THREE TIMES PER WEEK
     Route: 058
     Dates: start: 20210621

REACTIONS (1)
  - Multiple sclerosis relapse [Recovered/Resolved]

NARRATIVE: CASE EVENT DATE: 202107
